FAERS Safety Report 9312415 (Version 1)
Quarter: 2013Q2

REPORT INFORMATION
  Report Type: Spontaneous
  Country: US (occurrence: US)
  Receive Date: 20130528
  Receipt Date: 20130528
  Transmission Date: 20140414
  Serious: Yes (Hospitalization, Other)
  Sender: FDA-Public Use
  Company Number: CHPA2013US008584

PATIENT
  Age: 62 Year
  Sex: Female

DRUGS (5)
  1. EXCEDRIN EXTRA STRENGTH [Suspect]
     Indication: PAIN
     Dosage: 2 DF, ONCE/SINGLE
     Route: 048
     Dates: start: 20130228, end: 20130228
  2. EXCEDRIN EXTRA STRENGTH [Suspect]
     Indication: TENSION HEADACHE
     Dosage: 8 TO 10 PER DAY
     Route: 048
  3. BENICAR [Concomitant]
     Indication: BLOOD PRESSURE MANAGEMENT
     Dosage: UNK, UNK
  4. CRESTOR [Concomitant]
     Indication: BLOOD CHOLESTEROL
     Dosage: UNK, UNK
  5. TYLENOL [Concomitant]
     Dosage: UNK, UNK

REACTIONS (5)
  - Cerebrovascular accident [Recovering/Resolving]
  - Musculoskeletal disorder [Unknown]
  - Drug dependence [Unknown]
  - Medication overuse headache [Unknown]
  - Chest discomfort [Unknown]
